FAERS Safety Report 25474495 (Version 1)
Quarter: 2025Q2

REPORT INFORMATION
  Report Type: Report from Study
  Country: US (occurrence: US)
  Receive Date: 20250624
  Receipt Date: 20250624
  Transmission Date: 20250716
  Serious: Yes (Death)
  Sender: ABBVIE
  Company Number: US-ABBVIE-6340058

PATIENT
  Sex: Male

DRUGS (2)
  1. VENCLEXTA [Suspect]
     Active Substance: VENETOCLAX
     Indication: Mantle cell lymphoma
     Route: 048
     Dates: start: 20240817
  2. JAYPIRCA [Concomitant]
     Active Substance: PIRTOBRUTINIB
     Indication: Mantle cell lymphoma
     Dates: start: 20250415

REACTIONS (1)
  - Death [Fatal]
